FAERS Safety Report 6735778-5 (Version None)
Quarter: 2010Q2

REPORT INFORMATION
  Report Type: 
  Country: None (occurrence: None)
  Receive Date: 20100521
  Receipt Date: 20100511
  Transmission Date: 20101027
  Serious: Yes (Other)
  Sender: FDA-Public Use
  Company Number: A0794162A

PATIENT
  Age: 78 Year
  Sex: Female

DRUGS (1)
  1. AVANDIA [Suspect]
     Dosage: 4U PER DAY
     Route: 048
     Dates: start: 20050101, end: 20080101

REACTIONS (3)
  - DYSPNOEA [None]
  - FATIGUE [None]
  - PULMONARY THROMBOSIS [None]
